FAERS Safety Report 10765902 (Version 1)
Quarter: 2015Q1

REPORT INFORMATION
  Report Type: Spontaneous
  Country: US (occurrence: None)
  Receive Date: 20150204
  Receipt Date: 20150204
  Transmission Date: 20150721
  Serious: Yes (Life-Threatening, Hospitalization, Disabling, Other)
  Sender: FDA-Public Use
  Company Number: None

PATIENT
  Age: 57 Year
  Sex: Female
  Weight: 22.45 kg

DRUGS (6)
  1. SOMA [Concomitant]
     Active Substance: CARISOPRODOL
  2. LYRICA [Suspect]
     Active Substance: PREGABALIN
     Indication: DRUG THERAPY
     Dosage: 1 DAY DAYTIME MOUTH
     Route: 048
     Dates: start: 201406, end: 201409
  3. CALTRUM VITAMINS [Concomitant]
  4. SEIZURE MED [Concomitant]
  5. VICODIN [Concomitant]
     Active Substance: ACETAMINOPHEN\HYDROCODONE BITARTRATE
  6. BLOOD PRESSURE PILL [Concomitant]

REACTIONS (5)
  - Depression [None]
  - Thinking abnormal [None]
  - Crying [None]
  - Rash [None]
  - Seizure [None]

NARRATIVE: CASE EVENT DATE: 201405
